FAERS Safety Report 10348190 (Version 2)
Quarter: 2014Q3

REPORT INFORMATION
  Report Type: Spontaneous
  Country: US (occurrence: US)
  Receive Date: 20140729
  Receipt Date: 20140917
  Transmission Date: 20150326
  Serious: No
  Sender: FDA-Public Use
  Company Number: US-009507513-1407USA012403

PATIENT
  Age: 29 Year
  Sex: Female
  Weight: 92.97 kg

DRUGS (1)
  1. NEXPLANON [Suspect]
     Active Substance: ETONOGESTREL
     Dosage: UNK
     Route: 059
     Dates: start: 20140714, end: 20140718

REACTIONS (5)
  - Implant site pain [Recovered/Resolved]
  - Oedema [Recovered/Resolved]
  - Swelling [Recovered/Resolved]
  - Infection [Recovering/Resolving]
  - Implant site erythema [Recovering/Resolving]

NARRATIVE: CASE EVENT DATE: 20140715
